FAERS Safety Report 6110770-2 (Version None)
Quarter: 2009Q1

REPORT INFORMATION
  Report Type: 
  Country: None (occurrence: None)
  Receive Date: 20090311
  Receipt Date: 20090304
  Transmission Date: 20090719
  Serious: Yes (Other)
  Sender: FDA-Public Use
  Company Number: PHHY2008JP14663

PATIENT
  Age: 25 Year
  Sex: Female

DRUGS (2)
  1. EXJADE [Suspect]
     Indication: IRON OVERLOAD
     Dosage: 1000 MG DAILY
     Route: 048
     Dates: start: 20080703, end: 20080709
  2. EXJADE [Suspect]
     Indication: HAEMOGLOBINAEMIA
     Dosage: 500 MG DAILY
     Dates: start: 20080904

REACTIONS (4)
  - DISEASE PROGRESSION [None]
  - ERYTHEMA [None]
  - HAEMOGLOBINAEMIA [None]
  - PYREXIA [None]
